FAERS Safety Report 20658610 (Version 1)
Quarter: 2022Q1

REPORT INFORMATION
  Report Type: Spontaneous
  Country: US (occurrence: None)
  Receive Date: 20220330
  Receipt Date: 20220330
  Transmission Date: 20220424
  Serious: Yes (Hospitalization)
  Sender: FDA-Public Use
  Company Number: None

PATIENT
  Age: 70 Year
  Sex: Female

DRUGS (1)
  1. AMBRISENTAN [Suspect]
     Active Substance: AMBRISENTAN
     Indication: Pulmonary hypertension
     Dosage: FREQUENCY : DAILY;?
     Route: 048
     Dates: start: 20151110

REACTIONS (5)
  - Respiratory distress [None]
  - Respiratory failure [None]
  - Pulmonary oedema [None]
  - Pneumonia [None]
  - Pulmonary sarcoidosis [None]

NARRATIVE: CASE EVENT DATE: 20220312
